FAERS Safety Report 21475950 (Version 2)
Quarter: 2022Q4

REPORT INFORMATION
  Report Type: Spontaneous
  Country: DE (occurrence: DE)
  Receive Date: 20221019
  Receipt Date: 20221028
  Transmission Date: 20230113
  Serious: Yes (Other)
  Sender: FDA-Public Use
  Company Number: DE-SUN PHARMACEUTICAL INDUSTRIES LTD-2022R1-359394

PATIENT
  Age: 13 Year
  Sex: Female

DRUGS (3)
  1. COTRIMOXAZOLE [Interacting]
     Active Substance: SULFAMETHOXAZOLE\TRIMETHOPRIM
     Indication: Pyelonephritis
     Dosage: 960 MILLIGRAM
     Route: 042
  2. METHOTREXATE [Interacting]
     Active Substance: METHOTREXATE
     Indication: Chemotherapy
     Dosage: 5000 MILLIGRAM/SQ. METER
     Route: 065
  3. METHOTREXATE [Interacting]
     Active Substance: METHOTREXATE
     Dosage: 4500 MILLIGRAM/SQ. METER
     Route: 065

REACTIONS (6)
  - Medication error [Unknown]
  - Drug level increased [Unknown]
  - Drug interaction [Unknown]
  - Renal impairment [Unknown]
  - Toxicity to various agents [Unknown]
  - Stomatitis [Unknown]
